FAERS Safety Report 20814090 (Version 17)
Quarter: 2023Q4

REPORT INFORMATION
  Report Type: Spontaneous
  Country: CA (occurrence: CA)
  Receive Date: 20220511
  Receipt Date: 20231204
  Transmission Date: 20240109
  Serious: Yes (Hospitalization, Other)
  Sender: FDA-Public Use
  Company Number: CA-PFIZER INC-202200654822

PATIENT
  Age: 65 Year
  Sex: Male
  Weight: 78.2 kg

DRUGS (15)
  1. ZIRABEV [Suspect]
     Active Substance: BEVACIZUMAB-BVZR
     Dosage: 690 MG, EVERY 2 WEEKS
     Route: 042
     Dates: start: 20220217
  2. ZIRABEV [Suspect]
     Active Substance: BEVACIZUMAB-BVZR
     Dosage: 780 MG
     Route: 042
     Dates: start: 20230505
  3. ZIRABEV [Suspect]
     Active Substance: BEVACIZUMAB-BVZR
     Dosage: 780 MG
     Route: 042
     Dates: start: 20230519
  4. ZIRABEV [Suspect]
     Active Substance: BEVACIZUMAB-BVZR
     Dosage: 780 MG, 3 WEEKS APART WHEN DOSING  SHOULD BE EVERY 2 WEEKS
     Route: 042
     Dates: start: 20230616
  5. ZIRABEV [Suspect]
     Active Substance: BEVACIZUMAB-BVZR
     Dosage: 780 MG
     Route: 042
     Dates: start: 20230707
  6. ZIRABEV [Suspect]
     Active Substance: BEVACIZUMAB-BVZR
     Dosage: 780 MG
     Route: 042
     Dates: start: 20230721
  7. ZIRABEV [Suspect]
     Active Substance: BEVACIZUMAB-BVZR
     Dosage: 600 MG (7.5 MG/KG), EVERY 3 WEEKS
     Route: 042
  8. ZIRABEV [Suspect]
     Active Substance: BEVACIZUMAB-BVZR
     Dosage: 600 MG
     Route: 042
     Dates: start: 20230825
  9. ZIRABEV [Suspect]
     Active Substance: BEVACIZUMAB-BVZR
     Dosage: 600 MG
     Route: 042
     Dates: start: 20230825
  10. ZIRABEV [Suspect]
     Active Substance: BEVACIZUMAB-BVZR
     Dosage: 600 MG
     Route: 042
     Dates: start: 20230915
  11. ZIRABEV [Suspect]
     Active Substance: BEVACIZUMAB-BVZR
     Dosage: 600 MG
     Route: 042
     Dates: start: 20230915
  12. ZIRABEV [Suspect]
     Active Substance: BEVACIZUMAB-BVZR
     Dosage: 600 MG
     Route: 042
     Dates: start: 20231006
  13. ZIRABEV [Suspect]
     Active Substance: BEVACIZUMAB-BVZR
     Dosage: 600 MG
     Route: 042
     Dates: start: 20231006
  14. ZIRABEV [Suspect]
     Active Substance: BEVACIZUMAB-BVZR
     Dosage: 600 MG, EVERY 3 WEEKS
     Route: 042
     Dates: start: 20231027
  15. ZIRABEV [Suspect]
     Active Substance: BEVACIZUMAB-BVZR
     Dosage: 600 MG, EVERY 3 WEEKS
     Route: 042
     Dates: start: 20231027

REACTIONS (17)
  - Chest pain [Unknown]
  - Vomiting [Unknown]
  - Asphyxia [Unknown]
  - Gastrooesophageal reflux disease [Unknown]
  - Off label use [Unknown]
  - Inappropriate schedule of product administration [Unknown]
  - Blood pressure increased [Unknown]
  - Cognitive disorder [Unknown]
  - Fatigue [Not Recovered/Not Resolved]
  - Mobility decreased [Unknown]
  - Somnolence [Unknown]
  - Asthenia [Unknown]
  - Confusional state [Not Recovered/Not Resolved]
  - Swelling face [Unknown]
  - Ear swelling [Unknown]
  - Lymphadenopathy [Unknown]
  - Ear infection [Unknown]

NARRATIVE: CASE EVENT DATE: 20230101
